FAERS Safety Report 15056907 (Version 1)
Quarter: 2018Q2

REPORT INFORMATION
  Report Type: Spontaneous
  Country: US (occurrence: US)
  Receive Date: 20180604
  Receipt Date: 20180604
  Transmission Date: 20180711
  Serious: No
  Sender: FDA-Public Use
  Company Number: None

PATIENT
  Age: 63 Year
  Sex: Male

DRUGS (1)
  1. ENBREL [Suspect]
     Active Substance: ETANERCEPT
     Dates: end: 20180604

REACTIONS (4)
  - Tendon pain [None]
  - Arthralgia [None]
  - Myalgia [None]
  - Condition aggravated [None]

NARRATIVE: CASE EVENT DATE: 20180201
